FAERS Safety Report 10125779 (Version 2)
Quarter: 2014Q4

REPORT INFORMATION
  Report Type: Spontaneous
  Country: IT (occurrence: IT)
  Receive Date: 20140425
  Receipt Date: 20141015
  Transmission Date: 20150528
  Serious: Yes (Hospitalization)
  Sender: FDA-Public Use
  Company Number: IT-ACTAVIS-2014-08080

PATIENT
  Age: 21 Year
  Sex: Female

DRUGS (2)
  1. TRIMINULET [Suspect]
     Active Substance: ETHINYL ESTRADIOL\GESTODENE
     Indication: DRUG ABUSE
     Dosage: 41 DF, TOTAL
     Route: 048
     Dates: start: 20130815, end: 20130815
  2. PANTOPRAZOLE SODIUM (UNKNOWN) [Suspect]
     Active Substance: PANTOPRAZOLE SODIUM
     Indication: DRUG ABUSE
     Dosage: 5 DF, TOTAL
     Route: 048
     Dates: start: 20130815, end: 20130815

REACTIONS (3)
  - Tachycardia [Recovering/Resolving]
  - Drug abuse [Recovering/Resolving]
  - Hypotension [Not Recovered/Not Resolved]

NARRATIVE: CASE EVENT DATE: 20130815
